FAERS Safety Report 14670340 (Version 1)
Quarter: 2018Q1

REPORT INFORMATION
  Report Type: Spontaneous
  Country: US (occurrence: US)
  Receive Date: 20180322
  Receipt Date: 20180322
  Transmission Date: 20180509
  Serious: No
  Sender: FDA-Public Use
  Company Number: US-ADAMAS PHARMA, LLC-2017ADA00008

PATIENT
  Age: 78 Year
  Sex: Female
  Weight: 46.71 kg

DRUGS (25)
  1. POTASSIUM [Concomitant]
     Active Substance: POTASSIUM
  2. CEPHALEXIN. [Concomitant]
     Active Substance: CEPHALEXIN
  3. AMOXICILLIN. [Concomitant]
     Active Substance: AMOXICILLIN
  4. GABAPENTIN. [Concomitant]
     Active Substance: GABAPENTIN
  5. PRAMIPEXOLE. [Concomitant]
     Active Substance: PRAMIPEXOLE
  6. FUROSEMIDE. [Concomitant]
     Active Substance: FUROSEMIDE
  7. AMANTADINE. [Concomitant]
     Active Substance: AMANTADINE HYDROCHLORIDE
  8. MIRALAX [Concomitant]
     Active Substance: POLYETHYLENE GLYCOL 3350
     Indication: CONSTIPATION
     Dosage: UNK, 1X/DAY
  9. DULOXETINE. [Concomitant]
     Active Substance: DULOXETINE
  10. TRAZODONE [Concomitant]
     Active Substance: TRAZODONE HYDROCHLORIDE
  11. MONTELUKAST [Concomitant]
     Active Substance: MONTELUKAST SODIUM
  12. HYDROCODONE BITARTRATE AND ACETAMINOPHEN [Concomitant]
     Active Substance: ACETAMINOPHEN\HYDROCODONE BITARTRATE
     Dosage: UNK
  13. ALPRAZOLAM. [Concomitant]
     Active Substance: ALPRAZOLAM
  14. CARBIDOPA-LEVODOPA ER [Concomitant]
     Active Substance: CARBIDOPA\LEVODOPA
  15. OMEPRAZOLE. [Concomitant]
     Active Substance: OMEPRAZOLE
  16. GOCOVRI [Suspect]
     Active Substance: AMANTADINE
     Dosage: 274 MG, 1X/DAY AT BEDTIME
     Route: 048
     Dates: start: 20171108
  17. PRAMIPEXOLE. [Concomitant]
     Active Substance: PRAMIPEXOLE
  18. SENOKOT [Concomitant]
     Active Substance: SENNOSIDES
  19. GOCOVRI [Suspect]
     Active Substance: AMANTADINE
     Indication: DYSKINESIA
     Dosage: 137 MG, 1X/DAY AT BEDTIME
     Route: 048
     Dates: start: 20171101, end: 20171107
  20. POTASSIUM CHLORIDE ER [Concomitant]
     Active Substance: POTASSIUM CHLORIDE
  21. LEVOTHYROXINE. [Concomitant]
     Active Substance: LEVOTHYROXINE
  22. CEPHALEXIN. [Concomitant]
     Active Substance: CEPHALEXIN
  23. CARBIDOPA-LEVODOPA [Concomitant]
     Active Substance: CARBIDOPA\LEVODOPA
  24. ALBUTEROL. [Concomitant]
     Active Substance: ALBUTEROL
  25. LEVODOPA [Concomitant]
     Active Substance: LEVODOPA

REACTIONS (1)
  - Faeces soft [Not Recovered/Not Resolved]

NARRATIVE: CASE EVENT DATE: 201711
